FAERS Safety Report 8790892 (Version 1)
Quarter: 2012Q4

REPORT INFORMATION
  Report Type: Spontaneous
  Country: FR (occurrence: None)
  Receive Date: 20120910
  Receipt Date: 20120910
  Transmission Date: 20130627
  Serious: Yes (Other)
  Sender: FDA-Public Use
  Company Number: NGX_01296_2012

PATIENT
  Age: 24 Year
  Sex: Female

DRUGS (6)
  1. QUTENZA [Suspect]
     Indication: NEURALGIA
     Dosage: (1 DF [patch, on the knee] topical)
     Route: 061
     Dates: start: 20120712, end: 20120712
  2. EMLA /00675501/ [Concomitant]
  3. LYRICA [Concomitant]
  4. LAROXYL [Concomitant]
  5. VERSATIS [Concomitant]
  6. STRESAM [Concomitant]

REACTIONS (5)
  - Depression [None]
  - Application site pain [None]
  - Pain [None]
  - Allodynia [None]
  - Condition aggravated [None]
